FAERS Safety Report 9206718 (Version 2)
Quarter: 2013Q2

REPORT INFORMATION
  Report Type: Report from Study
  Country: CA (occurrence: CA)
  Receive Date: 20130403
  Receipt Date: 20130426
  Transmission Date: 20140414
  Serious: Yes (Other)
  Sender: FDA-Public Use
  Company Number: CA-JNJFOC-20130314799

PATIENT
  Age: 39 Year
  Sex: Female
  Weight: 106 kg

DRUGS (17)
  1. REMICADE [Suspect]
     Indication: CROHN^S DISEASE
     Route: 042
     Dates: start: 20130417
  2. REMICADE [Suspect]
     Indication: CROHN^S DISEASE
     Dosage: AT 0-2-6 AND THEN ONCE EVERY 8 WEEKS
     Route: 042
     Dates: start: 20130306
  3. REMICADE [Suspect]
     Indication: CROHN^S DISEASE
     Dosage: RECEIVED 3 DOSES
     Route: 042
     Dates: start: 2006
  4. CITALOPRAM [Concomitant]
     Route: 065
  5. DOMPERIDONE [Concomitant]
     Route: 065
  6. BENADRYL [Concomitant]
     Indication: PREMEDICATION
     Route: 048
  7. TRAZODONE [Concomitant]
     Route: 065
  8. ZOPICLONE [Concomitant]
     Route: 065
  9. PANTOLOC [Concomitant]
     Route: 065
  10. FLAGYL [Concomitant]
     Route: 065
  11. VALACYCLOVIR [Concomitant]
     Route: 065
  12. METHOTRIMEPRAZINE [Concomitant]
     Route: 065
  13. FOLIC ACID [Concomitant]
     Route: 065
  14. VENTOLIN [Concomitant]
     Route: 065
  15. SYMBICORT [Concomitant]
     Route: 065
  16. BENADRYL [Concomitant]
     Indication: PREMEDICATION
     Route: 042
  17. SOLUCORTEF [Concomitant]
     Indication: PREMEDICATION
     Route: 042

REACTIONS (6)
  - Systemic lupus erythematosus rash [Unknown]
  - Psoriasis [Unknown]
  - Hot flush [Recovered/Resolved]
  - Swelling face [Recovered/Resolved]
  - Eye swelling [Recovered/Resolved]
  - Infusion related reaction [Recovered/Resolved]
